FAERS Safety Report 5211981-0 (Version None)
Quarter: 2007Q1

REPORT INFORMATION
  Report Type: 
  Country: None (occurrence: None)
  Receive Date: 20070118
  Receipt Date: 20070117
  Transmission Date: 20070707
  Serious: Yes (Other)
  Sender: FDA-Public Use
  Company Number: JP-JPN-A200605639

PATIENT
  Age: 83 Year
  Sex: Female

DRUGS (10)
  1. PAXIL [Suspect]
     Indication: DRUG USE FOR UNKNOWN INDICATION
     Dosage: 10MG PER DAY
     Route: 048
  2. UNSPECIFIED MEDICATION [Concomitant]
     Dosage: 90MG PER DAY
     Route: 048
  3. TAIPROTON [Concomitant]
     Dosage: 15MG PER DAY
     Route: 048
  4. MAGNESIUM OXIDE [Concomitant]
     Dosage: 4.5MG PER DAY
     Route: 048
  5. HALCION [Concomitant]
     Dosage: .25MG PER DAY
     Route: 048
  6. AMARYL [Concomitant]
     Dosage: 1MG PER DAY
     Route: 048
  7. JAPANESE MEDICATION [Concomitant]
     Dosage: 6TAB PER DAY
     Route: 048
  8. JAPANESE MEDICATION [Concomitant]
     Dosage: 2TAB PER DAY
     Route: 048
  9. LEDOLPER [Concomitant]
     Dosage: .125MG PER DAY
     Route: 048
  10. THEO-DUR [Concomitant]
     Dosage: 400MG PER DAY
     Route: 048

REACTIONS (3)
  - DELIRIUM [None]
  - NIGHTMARE [None]
  - PERSONALITY DISORDER [None]
